FAERS Safety Report 6856997-3 (Version None)
Quarter: 2010Q3

REPORT INFORMATION
  Report Type: 
  Country: None (occurrence: None)
  Receive Date: 20100719
  Receipt Date: 20100716
  Transmission Date: 20110219
  Serious: Yes (Other)
  Sender: FDA-Public Use
  Company Number: A0869496A

PATIENT
  Sex: Female

DRUGS (19)
  1. LOVAZA [Suspect]
     Indication: BLOOD TRIGLYCERIDES INCREASED
     Dosage: 4CAP PER DAY
     Route: 048
  2. NIACIN [Concomitant]
  3. LORAZEPAM [Concomitant]
  4. VITAMIN B-12 [Concomitant]
  5. GARLIC [Concomitant]
  6. UNSPECIFIED MEDICATION [Concomitant]
  7. UNSPECIFIED MEDICATION [Concomitant]
  8. MULTI-VITAMIN [Concomitant]
  9. VITAMIN C [Concomitant]
  10. GINKO [Concomitant]
  11. BILBERRY [Concomitant]
  12. CALCIUM [Concomitant]
  13. HAWTHORNE BERRY HERB [Concomitant]
  14. LEVOTHROID [Concomitant]
  15. SUPER 5 HTP [Concomitant]
  16. CHROMIUM [Concomitant]
  17. PICOSULFATE [Concomitant]
  18. GREEN TEA EXTRACT [Concomitant]
  19. MAGNESIUM [Concomitant]

REACTIONS (10)
  - AGEUSIA [None]
  - ARTHRALGIA [None]
  - BACK PAIN [None]
  - BLOOD GLUCOSE INCREASED [None]
  - CERVIX CARCINOMA [None]
  - FUNGAL SKIN INFECTION [None]
  - ORAL FUNGAL INFECTION [None]
  - POLYPECTOMY [None]
  - SYSTEMIC MYCOSIS [None]
  - VULVOVAGINAL MYCOTIC INFECTION [None]
